FAERS Safety Report 20197139 (Version 1)
Quarter: 2021Q4

REPORT INFORMATION
  Report Type: Spontaneous
  Country: US (occurrence: US)
  Receive Date: 20211217
  Receipt Date: 20211217
  Transmission Date: 20220304
  Serious: Yes (Hospitalization, Other)
  Sender: FDA-Public Use
  Company Number: US-GLENMARK PHARMACEUTICALS-2021GMK069373

PATIENT
  Age: 24 Year
  Sex: Female

DRUGS (1)
  1. ZONISAMIDE [Suspect]
     Active Substance: ZONISAMIDE
     Indication: Epilepsy
     Dosage: UNK
     Route: 065

REACTIONS (5)
  - Renal vein varices [Recovered/Resolved]
  - Nephrocalcinosis [Recovered/Resolved]
  - Renal tubular acidosis [Recovered/Resolved]
  - Hydronephrosis [Recovered/Resolved]
  - Nephrolithiasis [Recovered/Resolved]
